FAERS Safety Report 6470618-3 (Version None)
Quarter: 2009Q4

REPORT INFORMATION
  Report Type: 
  Country: None (occurrence: None)
  Receive Date: 20091203
  Receipt Date: 20090223
  Transmission Date: 20100525
  Serious: No
  Sender: FDA-Public Use
  Company Number: US-ABBOTT-09P-163-0559341-00

PATIENT
  Sex: Female
  Weight: 86.26 kg

DRUGS (3)
  1. MERIDIA [Suspect]
     Indication: WEIGHT DECREASED
     Route: 048
     Dates: start: 20080401, end: 20080501
  2. MERIDIA [Suspect]
     Route: 048
     Dates: start: 20080701, end: 20080830
  3. MERIDIA [Suspect]
     Route: 048
     Dates: start: 20090213

REACTIONS (3)
  - DRUG INEFFECTIVE [None]
  - HEADACHE [None]
  - HYPERHIDROSIS [None]
